FAERS Safety Report 4610761-4 (Version None)
Quarter: 2005Q2

REPORT INFORMATION
  Report Type: 
  Country: None (occurrence: None)
  Receive Date: 20050301
  Receipt Date: 20041123
  Transmission Date: 20051028
  Serious: No
  Sender: FDA-Public Use
  Company Number: WAES 0411USA03866

PATIENT
  Age: 37 Year
  Sex: Female

DRUGS (4)
  1. ZETIA [Suspect]
     Dosage: 10 MG/PO
     Route: 048
     Dates: start: 20040720, end: 20041021
  2. COUMADIN [Concomitant]
  3. [THERAPY UNSPECIFIED] [Concomitant]
  4. PENICILLIN [Concomitant]

REACTIONS (3)
  - ALANINE AMINOTRANSFERASE INCREASED [None]
  - ASPARTATE AMINOTRANSFERASE INCREASED [None]
  - HEPATIC ENZYME INCREASED [None]
